FAERS Safety Report 4957244-X (Version None)
Quarter: 2006Q1

REPORT INFORMATION
  Report Type: 
  Country: None (occurrence: None)
  Receive Date: 20060323
  Receipt Date: 20060314
  Transmission Date: 20060701
  Serious: Yes (Hospitalization)
  Sender: FDA-Public Use
  Company Number: US200603003600

PATIENT
  Sex: Male

DRUGS (1)
  1. GEMZAR [Suspect]

REACTIONS (4)
  - DECREASED APPETITE [None]
  - HICCUPS [None]
  - INSOMNIA [None]
  - WEIGHT DECREASED [None]
